FAERS Safety Report 21003522 (Version 1)
Quarter: 2022Q2

REPORT INFORMATION
  Report Type: Spontaneous
  Country: US (occurrence: None)
  Receive Date: 20220623
  Receipt Date: 20220623
  Transmission Date: 20220720
  Serious: No
  Sender: FDA-Public Use
  Company Number: None

PATIENT
  Age: 34 Year
  Sex: Female
  Weight: 96.75 kg

DRUGS (3)
  1. IPRATROPIUM BROMIDE [Suspect]
     Active Substance: IPRATROPIUM BROMIDE
     Indication: Sinusitis
     Dosage: OTHER QUANTITY : 165 SPRAY(S);?FREQUENCY : 4 TIMES A DAY;?
     Route: 055
     Dates: start: 20220621, end: 20220623
  2. SERTRALINE [Concomitant]
     Active Substance: SERTRALINE HYDROCHLORIDE
  3. Women^s multi-vitamin [Concomitant]

REACTIONS (6)
  - Muscle spasms [None]
  - Diarrhoea [None]
  - Epistaxis [None]
  - Dry mouth [None]
  - Nasal dryness [None]
  - Dry throat [None]

NARRATIVE: CASE EVENT DATE: 20220623
